FAERS Safety Report 19665182 (Version 2)
Quarter: 2021Q3

REPORT INFORMATION
  Report Type: Spontaneous
  Country: US (occurrence: US)
  Receive Date: 20210805
  Receipt Date: 20210805
  Transmission Date: 20211014
  Serious: No
  Sender: FDA-Public Use
  Company Number: US-ROCHE-2832870

PATIENT
  Sex: Female

DRUGS (1)
  1. GAVRETO [Suspect]
     Active Substance: PRALSETINIB
     Indication: BRONCHIAL CARCINOMA
     Route: 048
     Dates: start: 20210110

REACTIONS (1)
  - Liver function test increased [Not Recovered/Not Resolved]
